FAERS Safety Report 24736514 (Version 1)
Quarter: 2024Q4

REPORT INFORMATION
  Report Type: Spontaneous
  Country: CN (occurrence: CN)
  Receive Date: 20241216
  Receipt Date: 20241216
  Transmission Date: 20250114
  Serious: Yes (Hospitalization, Other)
  Sender: NEXUS PHARMACEUTICALS
  Company Number: CN-Nexus Pharma-000346

PATIENT
  Age: 4 Decade
  Sex: Male

DRUGS (4)
  1. TRANEXAMIC ACID [Suspect]
     Active Substance: TRANEXAMIC ACID
     Indication: Procedural haemorrhage
     Route: 042
  2. VANCOMYCIN [Concomitant]
     Active Substance: VANCOMYCIN
  3. ROPIVACAINE [Concomitant]
     Active Substance: ROPIVACAINE
     Dosage: 40 ML OF 0.35%, 20 MG OF 0.5%
  4. DEXMEDETOMIDINE [Concomitant]
     Active Substance: DEXMEDETOMIDINE
     Indication: Sedation

REACTIONS (1)
  - Blindness [Recovered/Resolved]
